FAERS Safety Report 9490126 (Version 4)
Quarter: 2013Q3

REPORT INFORMATION
  Report Type: Report from Study
  Country: US (occurrence: US)
  Receive Date: 20130830
  Receipt Date: 20130930
  Transmission Date: 20140515
  Serious: Yes (Hospitalization)
  Sender: FDA-Public Use
  Company Number: US-PFIZER INC-2013234740

PATIENT
  Age: 70 Year
  Sex: Female
  Weight: 84.9 kg

DRUGS (19)
  1. BLINDED CELECOXIB [Suspect]
     Indication: OSTEOARTHRITIS
     Dosage: THRICE DAILY
     Route: 048
     Dates: start: 20100205
  2. BLINDED IBUPROFEN [Suspect]
     Indication: OSTEOARTHRITIS
     Dosage: THRICE DAILY
     Route: 048
     Dates: start: 20100205
  3. BLINDED IBUPROFEN [Suspect]
     Indication: OSTEOARTHRITIS
     Dosage: THRICE DAILY
     Route: 048
     Dates: start: 20100205
  4. BLINDED IBUPROFEN [Suspect]
     Indication: OSTEOARTHRITIS
     Dosage: THRICE DAILY
     Route: 048
     Dates: start: 20100205
  5. BLINDED NAPROXEN [Suspect]
     Indication: OSTEOARTHRITIS
     Dosage: THRICE DAILY
     Route: 048
     Dates: start: 20100205
  6. BLINDED NAPROXEN [Suspect]
     Indication: OSTEOARTHRITIS
     Dosage: THRICE DAILY
     Route: 048
     Dates: start: 20100205
  7. BLINDED NAPROXEN [Suspect]
     Indication: OSTEOARTHRITIS
     Dosage: THRICE DAILY
     Route: 048
     Dates: start: 20100205
  8. BLINDED PLACEBO [Suspect]
     Indication: OSTEOARTHRITIS
     Dosage: THRICE DAILY
     Route: 048
     Dates: start: 20100205
  9. BLINDED CELECOXIB [Suspect]
     Indication: RHEUMATOID ARTHRITIS
  10. BLINDED IBUPROFEN [Suspect]
     Indication: RHEUMATOID ARTHRITIS
  11. BLINDED IBUPROFEN [Suspect]
     Indication: RHEUMATOID ARTHRITIS
  12. BLINDED IBUPROFEN [Suspect]
     Indication: RHEUMATOID ARTHRITIS
  13. BLINDED NAPROXEN [Suspect]
     Indication: RHEUMATOID ARTHRITIS
  14. BLINDED NAPROXEN [Suspect]
     Indication: RHEUMATOID ARTHRITIS
  15. BLINDED NAPROXEN [Suspect]
     Indication: RHEUMATOID ARTHRITIS
  16. BLINDED PLACEBO [Suspect]
     Indication: RHEUMATOID ARTHRITIS
  17. CLINDAMYCIN HCL [Suspect]
     Indication: ANTIBIOTIC THERAPY
     Dosage: 300 MG, QID
     Route: 048
     Dates: start: 20130711, end: 20130722
  18. NEXIUM [Concomitant]
     Indication: PROPHYLAXIS
     Dosage: QD
     Route: 048
     Dates: start: 20100205
  19. TYLENOL [Concomitant]
     Indication: PAIN
     Dosage: 500 MG, Q6H
     Route: 048
     Dates: start: 20130715

REACTIONS (2)
  - Clavicle fracture [Recovering/Resolving]
  - Rib fracture [Recovering/Resolving]
